FAERS Safety Report 7716251-4 (Version None)
Quarter: 2011Q3

REPORT INFORMATION
  Report Type: 
  Country: None (occurrence: None)
  Receive Date: 20110812
  Receipt Date: 20110421
  Transmission Date: 20111222
  Serious: Yes (Other)
  Sender: FDA-Public Use
  Company Number: 2011SP018162

PATIENT
  Age: 54 Year
  Sex: Female

DRUGS (4)
  1. ZANTAC [Concomitant]
  2. ACIPHEX [Concomitant]
  3. VALIUM [Concomitant]
  4. REMERON [Suspect]
     Indication: DEPRESSION
     Dosage: 30 MG;QPM;PO
     Route: 048
     Dates: start: 20110401, end: 20110419

REACTIONS (13)
  - ABNORMAL SENSATION IN EYE [None]
  - SINUSITIS [None]
  - NECK PAIN [None]
  - ABDOMINAL PAIN UPPER [None]
  - EYE PAIN [None]
  - OROPHARYNGEAL PAIN [None]
  - MUSCULOSKELETAL STIFFNESS [None]
  - RASH [None]
  - INTESTINAL OBSTRUCTION [None]
  - WEIGHT INCREASED [None]
  - VISION BLURRED [None]
  - HEADACHE [None]
  - VOMITING [None]
